FAERS Safety Report 8042495-0 (Version None)
Quarter: 2012Q1

REPORT INFORMATION
  Report Type: 
  Country: None (occurrence: None)
  Receive Date: 20120112
  Receipt Date: 20120109
  Transmission Date: 20120608
  Serious: Yes (Hospitalization, Other)
  Sender: FDA-Public Use
  Company Number: US-PFIZER INC-2011039681

PATIENT
  Sex: Male

DRUGS (1)
  1. CHANTIX [Suspect]
     Indication: SMOKING CESSATION THERAPY
     Dosage: 1 MG, UNK
     Dates: start: 20090101, end: 20091001

REACTIONS (10)
  - DEPRESSION [None]
  - AMNESIA [None]
  - INTENTIONAL OVERDOSE [None]
  - LOSS OF CONSCIOUSNESS [None]
  - ARTHRALGIA [None]
  - HALLUCINATION, VISUAL [None]
  - INSOMNIA [None]
  - HALLUCINATION, AUDITORY [None]
  - ANXIETY [None]
  - SUICIDE ATTEMPT [None]
